FAERS Safety Report 23392232 (Version 1)
Quarter: 2024Q1

REPORT INFORMATION
  Report Type: Spontaneous
  Country: US (occurrence: US)
  Receive Date: 20240111
  Receipt Date: 20240111
  Transmission Date: 20240410
  Serious: Yes (Other)
  Sender: FDA-Public Use
  Company Number: US-REGENERON PHARMACEUTICALS, INC.-2023-053384

PATIENT
  Sex: Female

DRUGS (2)
  1. EYLEA [Suspect]
     Active Substance: AFLIBERCEPT
     Indication: Neovascular age-related macular degeneration
     Dosage: EVERY 5-7 WEEKS INTO LEFT EYE (BOTH EYES); FORMULATION: GERRESHEIMER PFS; STRENGTH: 2MG/0.05ML
     Dates: end: 20230406
  2. EYLEA [Suspect]
     Active Substance: AFLIBERCEPT
     Dosage: EVERY 5-7 WEEKS, RIGHT EYE; FORMULATION: GERRESHEIMER PFS; STRENGTH: 2MG/0.05ML
     Dates: end: 20230406

REACTIONS (1)
  - Endophthalmitis [Not Recovered/Not Resolved]

NARRATIVE: CASE EVENT DATE: 20230408
